FAERS Safety Report 19627039 (Version 1)
Quarter: 2021Q3

REPORT INFORMATION
  Report Type: Spontaneous
  Country: FR (occurrence: FR)
  Receive Date: 20210729
  Receipt Date: 20210729
  Transmission Date: 20211014
  Serious: Yes (Hospitalization)
  Sender: FDA-Public Use
  Company Number: FR-TEVA-2021-FR-1937051

PATIENT
  Age: 85 Year
  Sex: Female
  Weight: 55 kg

DRUGS (9)
  1. ROSUVASTATINE [Concomitant]
     Active Substance: ROSUVASTATIN
  2. RIVAROXABAN [Suspect]
     Active Substance: RIVAROXABAN
     Indication: PROPHYLAXIS
     Dosage: 15 MG
     Route: 048
     Dates: start: 20201029
  3. DUOPLAVIN 75 MG/75 MG, COMPRIME PELLICULE [Suspect]
     Active Substance: ASPIRIN\CLOPIDOGREL
     Indication: ANGINA UNSTABLE
     Dosage: 1 DOSAGE FORMS
     Route: 048
     Dates: start: 20210425
  4. RAMIPRIL. [Concomitant]
     Active Substance: RAMIPRIL
  5. LYRICA [Concomitant]
     Active Substance: PREGABALIN
  6. CHLORHYDRATE DE PAROXETINE ANHYDRE [Suspect]
     Active Substance: PAROXETINE
     Indication: DEPRESSION
     Dosage: 20 MG
     Route: 048
     Dates: start: 202007
  7. NATISPRAY 0,15 MG/DOSE, SOLUTION POUR PULVERISATION BUCCALE [Concomitant]
     Active Substance: NITROGLYCERIN
  8. BISOPROLOL (FUMARATE ACIDE DE) [Concomitant]
     Active Substance: BISOPROLOL FUMARATE
  9. LEVOTHYROX 50 MICROGRAMMES, COMPRIME SECABLE [Concomitant]
     Active Substance: LEVOTHYROXINE SODIUM

REACTIONS (1)
  - Vascular pseudoaneurysm [Recovered/Resolved]

NARRATIVE: CASE EVENT DATE: 20210430
